FAERS Safety Report 4913697-4 (Version None)
Quarter: 2006Q1

REPORT INFORMATION
  Report Type: 
  Country: None (occurrence: None)
  Receive Date: 20060214
  Receipt Date: 20060214
  Transmission Date: 20060701
  Serious: Yes (Hospitalization)
  Sender: FDA-Public Use
  Company Number: None

PATIENT
  Age: 39 Year
  Sex: Male
  Weight: 70.91 kg

DRUGS (3)
  1. CYTARABINE [Suspect]
     Indication: ACUTE MYELOID LEUKAEMIA
     Dosage: 385 MG
     Dates: start: 20060204
  2. DAUNORUBICIN [Suspect]
     Dosage: 414 MG
     Dates: start: 20060203
  3. ETOPOSIDE [Suspect]
     Dosage: 462 MG
     Dates: start: 20060203

REACTIONS (5)
  - CONDITION AGGRAVATED [None]
  - FUNGAL INFECTION [None]
  - HAEMORRHAGE [None]
  - HYPOXIA [None]
  - OXYGEN SATURATION DECREASED [None]
